FAERS Safety Report 8957252 (Version 2)
Quarter: 2013Q1

REPORT INFORMATION
  Report Type: Spontaneous
  Country: US (occurrence: US)
  Receive Date: 20121210
  Receipt Date: 20130308
  Transmission Date: 20140127
  Serious: Yes (Disabling, Other)
  Sender: FDA-Public Use
  Company Number: US-ASTELLAS-2012US010911

PATIENT
  Sex: Male

DRUGS (6)
  1. XTANDI [Suspect]
     Indication: PROSTATE CANCER
     Dosage: 160 MG, UID/QD
     Route: 048
     Dates: start: 20121002
  2. XANAX [Concomitant]
     Indication: PRODUCT USED FOR UNKNOWN INDICATION
     Dosage: 1.5 MG, UNKNOWN/D
     Route: 065
  3. PANTOPRAZOLE [Concomitant]
     Indication: PRODUCT USED FOR UNKNOWN INDICATION
     Dosage: UNK
     Route: 065
  4. SUCRALFATE [Concomitant]
     Indication: PRODUCT USED FOR UNKNOWN INDICATION
     Dosage: UNK
     Route: 065
  5. MULTI-VIT [Concomitant]
     Indication: PRODUCT USED FOR UNKNOWN INDICATION
     Dosage: UNK
     Route: 065
  6. PROZAC [Concomitant]
     Indication: PRODUCT USED FOR UNKNOWN INDICATION
     Dosage: UNK
     Route: 065

REACTIONS (8)
  - Paraesthesia [Recovered/Resolved]
  - Amnesia [Not Recovered/Not Resolved]
  - Muscle spasms [Recovered/Resolved]
  - Gastrointestinal disorder [Recovering/Resolving]
  - Mental impairment [Not Recovered/Not Resolved]
  - Anxiety [Recovering/Resolving]
  - Insomnia [Recovering/Resolving]
  - Disturbance in attention [Not Recovered/Not Resolved]
